FAERS Safety Report 9530175 (Version 1)
Quarter: 2013Q3

REPORT INFORMATION
  Report Type: Spontaneous
  Country: GB (occurrence: GB)
  Receive Date: 20130917
  Receipt Date: 20130917
  Transmission Date: 20140515
  Serious: Yes (Other)
  Sender: FDA-Public Use
  Company Number: PHHY2013GB100863

PATIENT
  Age: 55 Year
  Sex: Female
  Weight: 83.5 kg

DRUGS (4)
  1. ATORVASTATIN [Suspect]
     Indication: BLOOD CHOLESTEROL INCREASED
     Dosage: 10 MG, UNK
     Dates: start: 20130411, end: 20130421
  2. LEVOTHYROXINE [Concomitant]
     Dosage: 125 UG, FOR OVER 20 YEARS
  3. AMLODIPINE [Concomitant]
     Indication: HYPERTENSION
     Dosage: 10 MG, 10 YEARS
  4. FLUOXETINE [Concomitant]
     Dosage: 20 MG, UNK
     Dates: start: 2010

REACTIONS (6)
  - Anxiety [Recovered/Resolved]
  - Paranoia [Recovered/Resolved]
  - Movement disorder [Recovered/Resolved]
  - Personality change [Unknown]
  - Depression [Unknown]
  - Fatigue [Unknown]
